FAERS Safety Report 16086907 (Version 2)
Quarter: 2019Q2

REPORT INFORMATION
  Report Type: Spontaneous
  Country: IT (occurrence: IT)
  Receive Date: 20190318
  Receipt Date: 20190402
  Transmission Date: 20190711
  Serious: Yes (Other)
  Sender: FDA-Public Use
  Company Number: US-IMPAX LABORATORIES, LLC-2019-IPXL-00679

PATIENT
  Age: 8 Year
  Sex: Female

DRUGS (10)
  1. BACLOFEN. [Suspect]
     Active Substance: BACLOFEN
     Dosage: 700 MICROGRAM, 1 /DAY
     Route: 037
  2. DELORAZEPAM [Concomitant]
     Active Substance: DELORAZEPAM
     Indication: PRODUCT USED FOR UNKNOWN INDICATION
     Dosage: 0.04 MILLIGRAM/KILOGRAM, 1 /DAY
     Route: 048
  3. BACLOFEN. [Suspect]
     Active Substance: BACLOFEN
     Dosage: 650 MICROGRAM, 1 /DAY
     Route: 037
  4. OMEPRAZOLE. [Concomitant]
     Active Substance: OMEPRAZOLE
     Indication: PRODUCT USED FOR UNKNOWN INDICATION
     Dosage: UNK
     Route: 065
  5. BACLOFEN. [Suspect]
     Active Substance: BACLOFEN
     Dosage: 600 MICROGRAM, 1 /DAY
     Route: 037
  6. ENOXAPARIN [Concomitant]
     Active Substance: ENOXAPARIN
     Indication: PRODUCT USED FOR UNKNOWN INDICATION
     Dosage: UNK
     Route: 065
  7. BACLOFEN. [Suspect]
     Active Substance: BACLOFEN
     Dosage: 100 MICROGRAM, 1 /DAY
     Route: 037
  8. ACETAMINOPHEN. [Concomitant]
     Active Substance: ACETAMINOPHEN
     Indication: HYPERPYREXIA
     Dosage: WHEN NEEDED
     Route: 065
  9. BACLOFEN. [Suspect]
     Active Substance: BACLOFEN
     Indication: MUSCLE SPASTICITY
     Dosage: 450 MICROGRAM, 1 /DAY
     Route: 037
  10. DELORAZEPAM [Concomitant]
     Active Substance: DELORAZEPAM
     Dosage: 0.01 MILLIGRAM/KILOGRAM, 1 /DAY
     Route: 048

REACTIONS (1)
  - Sleep apnoea syndrome [Recovered/Resolved]
